FAERS Safety Report 24996401 (Version 3)
Quarter: 2025Q2

REPORT INFORMATION
  Report Type: Spontaneous
  Country: JP (occurrence: JP)
  Receive Date: 20250221
  Receipt Date: 20250421
  Transmission Date: 20250717
  Serious: No
  Sender: PFIZER
  Company Number: JP-PFIZER INC-202500040509

PATIENT

DRUGS (1)
  1. COMIRNATY (BRETOVAMERAN) [Suspect]
     Active Substance: BRETOVAMERAN
     Indication: COVID-19 immunisation
     Dates: start: 20250210, end: 20250210

REACTIONS (3)
  - Device connection issue [Unknown]
  - Device material issue [Unknown]
  - Device leakage [Unknown]

NARRATIVE: CASE EVENT DATE: 20250210
